FAERS Safety Report 4861302-8 (Version None)
Quarter: 2005Q4

REPORT INFORMATION
  Report Type: 
  Country: None (occurrence: None)
  Receive Date: 20051220
  Receipt Date: 20050926
  Transmission Date: 20060501
  Serious: Yes (Death, Hospitalization)
  Sender: FDA-Public Use
  Company Number: US-MERCK-0509USA04152

PATIENT
  Age: 78 Year
  Sex: Female

DRUGS (16)
  1. VIOXX [Suspect]
     Indication: ARTHRITIS
     Route: 048
     Dates: start: 20000331, end: 20031001
  2. ALPRAZOLAM [Concomitant]
     Indication: ANXIETY
     Route: 065
  3. ALTACE [Concomitant]
     Indication: HYPERTENSION
     Route: 065
  4. ASPIRIN [Concomitant]
     Indication: PAIN
     Route: 065
  5. ASPIRIN [Concomitant]
     Indication: PROPHYLAXIS
     Route: 065
  6. ERYTHROMYCIN [Concomitant]
     Indication: BACTERIAL INFECTION
     Route: 065
  7. INFLAMASE MILD [Concomitant]
     Indication: PAIN
     Route: 065
  8. LIPITOR [Concomitant]
     Indication: BLOOD CHOLESTEROL INCREASED
     Route: 048
     Dates: start: 19990101, end: 20031001
  9. MURO 128 OPHTHALMIC OINTMENT [Concomitant]
     Indication: EYE DISORDER
     Route: 065
  10. PRED FORTE [Concomitant]
     Indication: EYE DISORDER
     Route: 065
  11. PREMPRO [Concomitant]
     Indication: MENOPAUSE
     Route: 065
  12. PRILOSEC [Concomitant]
     Indication: GASTRIC DISORDER
     Route: 065
  13. SYNTHROID [Concomitant]
     Indication: THYROID DISORDER
     Route: 065
  14. HYDROCHLOROTHIAZIDE AND TRIAMTERENE [Concomitant]
     Indication: HYPERTENSION
     Route: 065
  15. HYDROCHLOROTHIAZIDE AND TRIAMTERENE [Concomitant]
     Indication: FLUID RETENTION
     Route: 065
  16. ZOLOFT [Concomitant]
     Indication: DEPRESSION
     Route: 065

REACTIONS (17)
  - ACUTE MYOCARDIAL INFARCTION [None]
  - ACUTE PULMONARY OEDEMA [None]
  - ATRIAL FLUTTER [None]
  - BLOOD CREATININE INCREASED [None]
  - CARDIAC FAILURE CONGESTIVE [None]
  - CAROTID ARTERY DISEASE [None]
  - CORONARY ARTERY DISEASE [None]
  - CORONARY ARTERY EMBOLISM [None]
  - DEATH [None]
  - ENDOCRINE DISORDER [None]
  - FUNGAL RASH [None]
  - LIVER DISORDER [None]
  - PERIPHERAL VASCULAR DISORDER [None]
  - PHLEBITIS [None]
  - PULMONARY OEDEMA [None]
  - RETROPERITONEAL HAEMORRHAGE [None]
  - THROMBOSIS IN DEVICE [None]
